FAERS Safety Report 23700239 (Version 5)
Quarter: 2025Q4

REPORT INFORMATION
  Report Type: Spontaneous
  Country: US (occurrence: US)
  Receive Date: 20240403
  Receipt Date: 20251114
  Transmission Date: 20260118
  Serious: No
  Sender: SANOFI AVENTIS
  Company Number: US-SA-SAC20240401001106

PATIENT
  Age: 50 Year
  Sex: Female

DRUGS (4)
  1. DUPIXENT [Suspect]
     Active Substance: DUPILUMAB
     Indication: Asthma
     Dosage: 600 MG, 1X
     Route: 058
     Dates: start: 20230815, end: 20230815
  2. DUPIXENT [Suspect]
     Active Substance: DUPILUMAB
     Dosage: 300 MG, QOW
     Route: 058
     Dates: start: 202308, end: 202409
  3. DUPIXENT [Suspect]
     Active Substance: DUPILUMAB
     Dosage: 300 MG, QOW
     Route: 058
  4. ZEPBOUND [Suspect]
     Active Substance: TIRZEPATIDE
     Dosage: UNK
     Route: 065

REACTIONS (9)
  - Bronchitis [Recovered/Resolved]
  - Chest discomfort [Unknown]
  - Intentional dose omission [Unknown]
  - Illness [Unknown]
  - Nausea [Recovering/Resolving]
  - Nasopharyngitis [Unknown]
  - Asthma [Recovered/Resolved]
  - Asthma [Unknown]
  - Therapeutic response decreased [Unknown]

NARRATIVE: CASE EVENT DATE: 20240101
